FAERS Safety Report 4372850-1 (Version None)
Quarter: 2004Q2

REPORT INFORMATION
  Report Type: 
  Country: None (occurrence: None)
  Receive Date: 20040603
  Receipt Date: 20040518
  Transmission Date: 20050107
  Serious: Yes (Hospitalization)
  Sender: FDA-Public Use
  Company Number: 9039997-2004-00012

PATIENT
  Age: 67 Year
  Sex: Male

DRUGS (5)
  1. LEVULAN KERASTICK FOR TOPICAL SOLN, 20% [Suspect]
     Indication: ACTINIC KERATOSIS
     Dosage: 20%, ONCE, TOPICAL
     Route: 061
     Dates: start: 20040511, end: 20040512
  2. LIPITOR [Concomitant]
  3. BETA BLOCKER [Concomitant]
  4. REXALL (MEN'S HEALTH VITAMIN) [Concomitant]
  5. PROPRIETY VITAMIN SUPPLEMENT [Concomitant]

REACTIONS (3)
  - ARRHYTHMIA [None]
  - DIZZINESS [None]
  - PALPITATIONS [None]
